FAERS Safety Report 23700483 (Version 1)
Quarter: 2024Q2

REPORT INFORMATION
  Report Type: Report from Study
  Country: GR (occurrence: GR)
  Receive Date: 20240403
  Receipt Date: 20240403
  Transmission Date: 20240715
  Serious: Yes (Hospitalization, Other)
  Sender: FDA-Public Use
  Company Number: GR-TAKEDA-2024TUS030697

PATIENT
  Age: 57 Year
  Sex: Female

DRUGS (1)
  1. HUMAN IMMUNOGLOBULIN G\HYALURONIDASE RECOMBINANT HUMAN [Suspect]
     Active Substance: HUMAN IMMUNOGLOBULIN G\HYALURONIDASE (HUMAN RECOMBINANT)
     Indication: Immunodeficiency
     Dosage: 1 DOSAGE FORM
     Route: 058
     Dates: start: 202206

REACTIONS (4)
  - Bipolar disorder [Not Recovered/Not Resolved]
  - Administration site pain [Not Recovered/Not Resolved]
  - Administration site irritation [Not Recovered/Not Resolved]
  - Administration site erythema [Not Recovered/Not Resolved]
